FAERS Safety Report 5164702-4 (Version None)
Quarter: 2006Q4

REPORT INFORMATION
  Report Type: 
  Country: None (occurrence: None)
  Receive Date: 20061205
  Receipt Date: 20061121
  Transmission Date: 20070319
  Serious: Yes (Hospitalization)
  Sender: FDA-Public Use
  Company Number: JP-ELI_LILLY_AND_COMPANY-JP200611005092

PATIENT
  Age: 73 Year
  Sex: Male

DRUGS (2)
  1. GEMZAR [Suspect]
     Indication: GALLBLADDER CANCER
     Dosage: 1000 MG/M2, OTHER
     Route: 042
     Dates: start: 20060101, end: 20061121
  2. TS 1                                    /JPN/ [Concomitant]
     Indication: GALLBLADDER CANCER
     Dosage: 80 MG, UNK
     Route: 048
     Dates: start: 20060101, end: 20061121

REACTIONS (2)
  - INFECTION IN AN IMMUNOCOMPROMISED HOST [None]
  - PNEUMONIA [None]
